FAERS Safety Report 15848470 (Version 3)
Quarter: 2023Q2

REPORT INFORMATION
  Report Type: Spontaneous
  Country: US (occurrence: US)
  Receive Date: 20190121
  Receipt Date: 20230621
  Transmission Date: 20230722
  Serious: Yes (Hospitalization, Other)
  Sender: FDA-Public Use
  Company Number: US-BAYER-2019-013039

PATIENT
  Age: 73 Year
  Sex: Female

DRUGS (2)
  1. GADOBUTROL [Suspect]
     Active Substance: GADOBUTROL
     Indication: Steroid therapy
     Dosage: UNK UNK, ONCE
     Route: 037
  2. METHYLPREDNISOLONE [Concomitant]
     Active Substance: METHYLPREDNISOLONE
     Route: 008

REACTIONS (6)
  - Contrast encephalopathy [None]
  - Subarachnoid haemorrhage [None]
  - Traumatic lumbar puncture [None]
  - Meningitis chemical [Recovered/Resolved]
  - Extravasation [Recovered/Resolved]
  - Off label use [None]
